FAERS Safety Report 6286432-8 (Version None)
Quarter: 2009Q3

REPORT INFORMATION
  Report Type: 
  Country: None (occurrence: None)
  Receive Date: 20090728
  Receipt Date: 20090722
  Transmission Date: 20100115
  Serious: Yes (Hospitalization)
  Sender: FDA-Public Use
  Company Number: A0731211A

PATIENT
  Age: 52 Year
  Sex: Female
  Weight: 90.9 kg

DRUGS (5)
  1. AVANDIA [Suspect]
     Dosage: 4MG PER DAY
     Route: 048
     Dates: start: 20020621, end: 20030628
  2. NPH INSULIN [Concomitant]
  3. HUMULIN R [Concomitant]
  4. ACIPHEX [Concomitant]
  5. LOPID [Concomitant]

REACTIONS (4)
  - ANGIOPATHY [None]
  - CARDIAC FAILURE CONGESTIVE [None]
  - DEAFNESS NEUROSENSORY [None]
  - MYOCARDIAL INFARCTION [None]
